FAERS Safety Report 12616268 (Version 1)
Quarter: 2016Q3

REPORT INFORMATION
  Report Type: Spontaneous
  Country: FR (occurrence: FR)
  Receive Date: 20160802
  Receipt Date: 20160802
  Transmission Date: 20161109
  Serious: Yes (Death, Other)
  Sender: FDA-Public Use
  Company Number: FR-TEVA-681475ISR

PATIENT
  Age: 79 Year
  Sex: Male

DRUGS (6)
  1. PIPERACILLIN [Concomitant]
     Active Substance: PIPERACILLIN
  2. PREDNISOLONE. [Interacting]
     Active Substance: PREDNISOLONE
  3. METHYLPREDNISOLONE. [Interacting]
     Active Substance: METHYLPREDNISOLONE
     Indication: VOMITING
  4. ERLOTINIB [Interacting]
     Active Substance: ERLOTINIB
  5. CIPROFLOXACIN. [Suspect]
     Active Substance: CIPROFLOXACIN
  6. PREDNISOLONE. [Interacting]
     Active Substance: PREDNISOLONE

REACTIONS (3)
  - Pneumoperitoneum [Fatal]
  - Drug interaction [Fatal]
  - Gastrointestinal perforation [Fatal]
